FAERS Safety Report 9671682 (Version 2)
Quarter: 2013Q4

REPORT INFORMATION
  Report Type: Spontaneous
  Country: GB (occurrence: None)
  Receive Date: 20131104
  Receipt Date: 20131118
  Transmission Date: 20140711
  Serious: Yes (Disabling)
  Sender: FDA-Public Use
  Company Number: AUR-APL-2013-09066

PATIENT
  Age: 85 Year
  Sex: Male
  Weight: 73 kg

DRUGS (7)
  1. METFORMIN (METFORMIN) [Suspect]
     Indication: TYPE 2 DIABETES MELLITUS
     Dates: start: 2002
  2. BENDROFLUMETHIAZIDE (DENDROFLUMETHIAZIDE) [Concomitant]
  3. BISOPROLOL (BISOPROLOL) [Concomitant]
  4. CANDESARTAN (CANDESARTAN) [Concomitant]
  5. MOVICOL (POLYETHYL. GLYC. W/POTAS. CHLOR./SOD. BICARB.) [Concomitant]
  6. VITAMIN B12 (CYANOCOBALAMIN) [Concomitant]
  7. WARFARIN (WARFARIN) [Concomitant]

REACTIONS (4)
  - Gait disturbance [None]
  - Anaemia [None]
  - Fall [None]
  - Blood creatinine increased [None]
